FAERS Safety Report 6619673-8 (Version None)
Quarter: 2010Q1

REPORT INFORMATION
  Report Type: 
  Country: None (occurrence: None)
  Receive Date: 20100309
  Receipt Date: 20100301
  Transmission Date: 20100710
  Serious: Yes (Hospitalization)
  Sender: FDA-Public Use
  Company Number: US-JNJFOC-20100301055

PATIENT
  Age: 65 Year
  Sex: Female

DRUGS (1)
  1. FENTANYL CITRATE [Suspect]
     Indication: BACK PAIN
     Route: 062

REACTIONS (6)
  - ADRENAL DISORDER [None]
  - FATIGUE [None]
  - HALLUCINATION [None]
  - PYREXIA [None]
  - RENAL FAILURE [None]
  - SOMNOLENCE [None]
